FAERS Safety Report 5857291-X (Version None)
Quarter: 2008Q3

REPORT INFORMATION
  Report Type: 
  Country: None (occurrence: None)
  Receive Date: 20080822
  Receipt Date: 20080813
  Transmission Date: 20090109
  Serious: Yes (Life-Threatening, Hospitalization)
  Sender: FDA-Public Use
  Company Number: GXKR2008US07672

PATIENT
  Age: 46 Year
  Sex: Female

DRUGS (8)
  1. CITALOPRAM HYDROBROMIDE [Suspect]
     Indication: DEPRESSION
     Dosage: 20 MG, QD
  2. FLUCONAZOLE [Suspect]
     Dosage: 200 MG, QD
  3. ESOMEPRAZOLE MAGNESIUM [Suspect]
     Dosage: 20 MG, QD
  4. DAPSONE [Concomitant]
  5. ACYCLOVIR [Concomitant]
  6. DEXAMETHASONE TAB [Concomitant]
  7. ZOLPIDEM TARTRATE [Concomitant]
  8. LOSARTAN POTASSIUM AND HYDROCHLOROTHIAZIDE [Concomitant]

REACTIONS (21)
  - AREFLEXIA [None]
  - BLOOD ALBUMIN DECREASED [None]
  - BLOOD POTASSIUM DECREASED [None]
  - BLOOD PRESSURE INCREASED [None]
  - BLUNTED AFFECT [None]
  - CONFUSIONAL STATE [None]
  - DELIRIUM [None]
  - DEPRESSION [None]
  - DRUG INTERACTION [None]
  - DRUG TOXICITY [None]
  - ELECTROENCEPHALOGRAM ABNORMAL [None]
  - GAIT DISTURBANCE [None]
  - HAEMOGLOBIN DECREASED [None]
  - MEMORY IMPAIRMENT [None]
  - PERSEVERATION [None]
  - PETIT MAL EPILEPSY [None]
  - PLATELET COUNT DECREASED [None]
  - PSYCHOMOTOR RETARDATION [None]
  - SEROTONIN SYNDROME [None]
  - THINKING ABNORMAL [None]
  - WHITE BLOOD CELL COUNT DECREASED [None]
